FAERS Safety Report 14924112 (Version 3)
Quarter: 2018Q3

REPORT INFORMATION
  Report Type: Spontaneous
  Country: CZ (occurrence: CZ)
  Receive Date: 20180522
  Receipt Date: 20180710
  Transmission Date: 20181010
  Serious: Yes (Other)
  Sender: FDA-Public Use
  Company Number: CZ-009507513-1805CZE007723

PATIENT
  Age: 89 Year
  Sex: Female
  Weight: 44 kg

DRUGS (25)
  1. ALENDRONATE SODIUM. [Suspect]
     Active Substance: ALENDRONATE SODIUM
     Dosage: UNK
     Route: 065
  2. CORDARONE [Interacting]
     Active Substance: AMIODARONE HYDROCHLORIDE
     Indication: CARDIAC FAILURE
     Dosage: 1?0?0
     Route: 048
  3. WARFARIN [Concomitant]
     Active Substance: WARFARIN
     Dosage: 3 MG,QD
     Route: 065
  4. MILURIT [Concomitant]
     Active Substance: ALLOPURINOL
     Indication: HYPERURICAEMIA
     Dosage: 300 MG, QD
     Route: 048
  5. FUROSEMIDE. [Suspect]
     Active Substance: FUROSEMIDE
     Dosage: 20 MG,PRN ; AS NECESSARY
     Route: 048
  6. FURON [Suspect]
     Active Substance: FUROSEMIDE
     Dosage: AS NECESSARY
     Route: 048
  7. PENTOXIFYLLINE. [Concomitant]
     Active Substance: PENTOXIFYLLINE
     Dosage: 1200 MG, QD
     Route: 065
  8. DITHIADEN [Concomitant]
     Active Substance: BISULEPIN
     Dosage: 2 MG, QD
     Route: 065
  9. PENTOMER [Suspect]
     Active Substance: PENTOXIFYLLINE
     Dosage: 1?1?1; DOSE REPORTED AS ^3^ (UNITS NOT PROVIDED)
     Route: 065
  10. VEROSPIRON [Interacting]
     Active Substance: SPIRONOLACTONE
     Dosage: 25 MG, QD
     Route: 048
  11. DIGOXIN. [Interacting]
     Active Substance: DIGOXIN
     Dosage: .125 UG,QD
     Route: 048
  12. SECATOXIN [Suspect]
     Active Substance: ERGOLOID MESYLATES
     Dosage: GTT; 20?20?20
     Route: 065
  13. DITHIADEN [Concomitant]
     Active Substance: BISULEPIN
     Dosage: 2 MG,QD
     Route: 065
  14. CARVEDILOL. [Interacting]
     Active Substance: CARVEDILOL
     Dosage: 6.25 MG,QD
     Route: 048
  15. DIGOXIN. [Interacting]
     Active Substance: DIGOXIN
     Indication: CARDIAC FAILURE
     Dosage: 1?0?0
     Route: 048
  16. ALENDRONIC ACID [Suspect]
     Active Substance: ALENDRONIC ACID
     Dosage: UNK UNK,UNK
     Route: 065
  17. PENTOXIFYLLINE. [Suspect]
     Active Substance: PENTOXIFYLLINE
     Dosage: UNK, TID
     Route: 065
  18. CORDARONE [Interacting]
     Active Substance: AMIODARONE HYDROCHLORIDE
     Indication: CARDIAC FAILURE
     Dosage: 200 MG,QD
     Route: 048
  19. DILATREND [Interacting]
     Active Substance: CARVEDILOL
     Dosage: 1?0?0; DOSE: 6.25 MG
     Route: 048
  20. PENTOXIFYLLINE. [Concomitant]
     Active Substance: PENTOXIFYLLINE
     Dosage: 400 MG, QD
     Route: 065
  21. WARFARIN [Concomitant]
     Active Substance: WARFARIN
     Dosage: 3 MG, QD
     Route: 065
  22. FLUTICASONE. [Concomitant]
     Active Substance: FLUTICASONE
     Dosage: 1 DF,BID
     Route: 065
  23. SPIRONOLACTONE. [Interacting]
     Active Substance: SPIRONOLACTONE
     Dosage: 25 MG,QD
     Route: 048
  24. ALENDRONATE SODIUM. [Suspect]
     Active Substance: ALENDRONATE SODIUM
     Indication: OSTEOPOROSIS
     Dosage: 70 MG, QW
     Route: 048
     Dates: start: 2006
  25. ERGOLOID MESYLATES. [Suspect]
     Active Substance: ERGOLOID MESYLATES
     Dosage: UNK UNK,UNK
     Route: 065

REACTIONS (16)
  - Vision blurred [Unknown]
  - Heart rate decreased [Unknown]
  - Fall [Unknown]
  - Toxicity to various agents [Unknown]
  - Hypotension [Unknown]
  - Hyperkalaemia [Unknown]
  - Cardioactive drug level increased [Unknown]
  - Bradycardia [Unknown]
  - Overdose [Unknown]
  - Labelled drug-drug interaction medication error [Unknown]
  - Nausea [Unknown]
  - Drug interaction [Unknown]
  - Weight decreased [Unknown]
  - Decreased appetite [Unknown]
  - Diarrhoea [Unknown]
  - Vomiting [Unknown]
